FAERS Safety Report 13497836 (Version 3)
Quarter: 2017Q4

REPORT INFORMATION
  Report Type: Spontaneous
  Country: JP (occurrence: JP)
  Receive Date: 20170428
  Receipt Date: 20171101
  Transmission Date: 20180320
  Serious: Yes (Other)
  Sender: FDA-Public Use
  Company Number: JP-ABBVIE-17P-087-1958051-00

PATIENT
  Age: 37 Year
  Sex: Female
  Weight: 47.5 kg

DRUGS (5)
  1. HUMIRA [Suspect]
     Active Substance: ADALIMUMAB
     Indication: PSORIATIC ARTHROPATHY
     Route: 058
     Dates: start: 20130307, end: 20170331
  2. MAXACALCITOL [Concomitant]
     Active Substance: MAXACALCITOL
     Route: 061
     Dates: start: 20161126
  3. HUMIRA [Suspect]
     Active Substance: ADALIMUMAB
     Indication: PSORIATIC ARTHROPATHY
     Route: 058
     Dates: start: 2017, end: 201704
  4. MAXACALCITOL [Concomitant]
     Active Substance: MAXACALCITOL
     Indication: PSORIASIS
     Route: 061
     Dates: start: 20131017
  5. HEPARINOID [Concomitant]
     Active Substance: CHONDROITIN SULFATE (BOVINE)
     Indication: DRY SKIN PROPHYLAXIS
     Route: 061
     Dates: start: 20131017

REACTIONS (9)
  - Gamma-glutamyltransferase decreased [Unknown]
  - Haemoglobin decreased [Recovered/Resolved]
  - Red blood cell count decreased [Recovered/Resolved]
  - Haematocrit decreased [Recovered/Resolved]
  - Blood creatinine decreased [Unknown]
  - Protein total decreased [Recovered/Resolved]
  - Papillary thyroid cancer [Not Recovered/Not Resolved]
  - Blood urea decreased [Recovered/Resolved]
  - C-reactive protein increased [Unknown]

NARRATIVE: CASE EVENT DATE: 20141203
